FAERS Safety Report 9839275 (Version 1)
Quarter: 2014Q1

REPORT INFORMATION
  Report Type: Spontaneous
  Country: US (occurrence: None)
  Receive Date: 20140116
  Receipt Date: 20140116
  Transmission Date: 20141002
  Serious: Yes (Hospitalization)
  Sender: FDA-Public Use
  Company Number: B0959376A

PATIENT
  Age: 31 Year
  Sex: Male

DRUGS (1)
  1. BUPROPION HYDROCHLORIDE [Suspect]
     Indication: PRODUCT USED FOR UNKNOWN INDICATION

REACTIONS (19)
  - Cardiotoxicity [None]
  - Confusional state [None]
  - Laceration [None]
  - Blood pressure increased [None]
  - Sinus tachycardia [None]
  - Lethargy [None]
  - Grand mal convulsion [None]
  - Hypotension [None]
  - Head injury [None]
  - Intracranial pressure increased [None]
  - Blood creatine phosphokinase increased [None]
  - Pupil fixed [None]
  - Ventricular extrasystoles [None]
  - Ventricular extrasystoles [None]
  - Electrocardiogram QT prolonged [None]
  - Atrial fibrillation [None]
  - Aspiration [None]
  - Overdose [None]
  - Chorea [None]
